FAERS Safety Report 22519819 (Version 1)
Quarter: 2023Q2

REPORT INFORMATION
  Report Type: Spontaneous
  Country: US (occurrence: US)
  Receive Date: 20230605
  Receipt Date: 20230605
  Transmission Date: 20230722
  Serious: Yes (Hospitalization)
  Sender: FDA-Public Use
  Company Number: US-MYLANLABS-2023M1057773

PATIENT
  Age: 58 Year
  Sex: Male

DRUGS (3)
  1. POTASSIUM [Suspect]
     Active Substance: POTASSIUM
     Indication: Hypokalaemia
     Dosage: UNK
     Route: 042
  2. NEOSTIGMINE [Concomitant]
     Active Substance: NEOSTIGMINE
     Indication: Intestinal pseudo-obstruction
     Dosage: UNK
     Route: 065
  3. NITAZOXANIDE [Concomitant]
     Active Substance: NITAZOXANIDE
     Indication: Cryptosporidiosis infection
     Dosage: UNK, 2 COURSES
     Route: 065

REACTIONS (1)
  - Drug ineffective [Unknown]
